FAERS Safety Report 7820690-0 (Version None)
Quarter: 2011Q4

REPORT INFORMATION
  Report Type: 
  Country: None (occurrence: None)
  Receive Date: 20111013
  Receipt Date: 20110927
  Transmission Date: 20120403
  Serious: Yes (Hospitalization)
  Sender: FDA-Public Use
  Company Number: 2011MA012730

PATIENT
  Age: 2 Year
  Sex: Female
  Weight: 10.92 kg

DRUGS (4)
  1. ISONIAZID [Suspect]
     Indication: PULMONARY TUBERCULOSIS
     Dosage: 10.2 MG/KG;QD
  2. PYRAZINAMIDE [Suspect]
     Indication: PULMONARY TUBERCULOSIS
     Dosage: 22.7 MG/KG;QD
  3. STREPTOMYCIN [Suspect]
     Indication: PULMONARY TUBERCULOSIS
  4. RIFAMPIN [Suspect]
     Indication: PULMONARY TUBERCULOSIS
     Dosage: 14 MG/KG;QD

REACTIONS (14)
  - LYMPHADENOPATHY [None]
  - PLEURAL EFFUSION [None]
  - LUNG INFILTRATION [None]
  - COUGH [None]
  - INTERSTITIAL LUNG DISEASE [None]
  - HILAR LYMPHADENOPATHY [None]
  - PARADOXICAL DRUG REACTION [None]
  - PYREXIA [None]
  - DISEASE PROGRESSION [None]
  - CENTRAL NERVOUS SYSTEM LESION [None]
  - DISSEMINATED TUBERCULOSIS [None]
  - LUNG CONSOLIDATION [None]
  - COMPUTERISED TOMOGRAM ABNORMAL [None]
  - TREATMENT NONCOMPLIANCE [None]
